FAERS Safety Report 9215757 (Version 1)
Quarter: 2013Q2

REPORT INFORMATION
  Report Type: Spontaneous
  Country: FR (occurrence: FR)
  Receive Date: 20130408
  Receipt Date: 20130408
  Transmission Date: 20140414
  Serious: Yes (Hospitalization)
  Sender: FDA-Public Use
  Company Number: FR-AMGEN-FRASP2013023846

PATIENT
  Age: 78 Year
  Sex: Female

DRUGS (8)
  1. ENBREL [Suspect]
     Indication: RHEUMATOID ARTHRITIS
     Dosage: 50 MG ONCE WEEKLY
     Route: 058
     Dates: start: 2000, end: 20130108
  2. NOVATREX /00113801/ [Suspect]
     Indication: RHEUMATOID ARTHRITIS
     Dosage: 7.5 MG ONCE WEEKLY
     Route: 048
     Dates: start: 2004, end: 20130108
  3. AUGMENTIN [Suspect]
     Indication: PNEUMONIA
     Dosage: UNK
     Route: 048
     Dates: start: 20130103, end: 20130108
  4. CELEBREX [Concomitant]
     Dosage: UNK
  5. SPECIAFOLDINE [Concomitant]
     Dosage: 2 DF, WEEKLY
  6. IXPRIM [Concomitant]
     Dosage: UNK
  7. MOPRAL                             /00661201/ [Concomitant]
     Dosage: 20 UNK
  8. SOLUPRED                           /00016201/ [Concomitant]
     Indication: LUNG DISORDER
     Dosage: UNK

REACTIONS (2)
  - Drug interaction [Recovered/Resolved]
  - Pancytopenia [Recovered/Resolved]
